FAERS Safety Report 6689180-5 (Version None)
Quarter: 2010Q2

REPORT INFORMATION
  Report Type: 
  Country: None (occurrence: None)
  Receive Date: 20100420
  Receipt Date: 20100205
  Transmission Date: 20101027
  Serious: No
  Sender: FDA-Public Use
  Company Number: US-ALLERGAN-0914905US

PATIENT
  Age: 51 Year
  Sex: Female

DRUGS (3)
  1. LATISSE [Suspect]
     Dosage: UNK
     Route: 061
     Dates: end: 20091101
  2. TAMOXIFEN CITRATE [Concomitant]
     Indication: BREAST CANCER
     Dosage: UNK
     Dates: start: 20090101
  3. NEURONTIN [Concomitant]
     Dosage: UNK
     Dates: start: 20090101

REACTIONS (3)
  - DRUG ADMINISTERED AT INAPPROPRIATE SITE [None]
  - DRUG ADMINISTRATION ERROR [None]
  - MADAROSIS [None]
